FAERS Safety Report 14990531 (Version 1)
Quarter: 2018Q2

REPORT INFORMATION
  Report Type: Spontaneous
  Country: US (occurrence: US)
  Receive Date: 20180608
  Receipt Date: 20180608
  Transmission Date: 20180711
  Serious: No
  Sender: FDA-Public Use
  Company Number: US-ROCHE-1963644

PATIENT
  Age: 76 Year
  Sex: Female
  Weight: 54.48 kg

DRUGS (3)
  1. ACTEMRA [Suspect]
     Active Substance: TOCILIZUMAB
     Indication: PRODUCT USED FOR UNKNOWN INDICATION
     Dosage: INJECTION EVERY OTHER WEEK
     Route: 058
     Dates: start: 20150203, end: 20151227
  2. ACTEMRA [Suspect]
     Active Substance: TOCILIZUMAB
     Dosage: INJECTION EVERY WEEK ;ONGOING: NO
     Route: 058
     Dates: start: 20161228, end: 201703
  3. ACTEMRA [Suspect]
     Active Substance: TOCILIZUMAB
     Dosage: ONGOING: YES
     Route: 058
     Dates: start: 20170710

REACTIONS (4)
  - Dizziness [Recovered/Resolved]
  - Nausea [Recovered/Resolved]
  - Skin discolouration [Not Recovered/Not Resolved]
  - Headache [Recovered/Resolved]

NARRATIVE: CASE EVENT DATE: 20170711
